FAERS Safety Report 5076159-2 (Version None)
Quarter: 2006Q3

REPORT INFORMATION
  Report Type: 
  Country: None (occurrence: None)
  Receive Date: 20060809
  Receipt Date: 20060803
  Transmission Date: 20061208
  Serious: Yes (Hospitalization)
  Sender: FDA-Public Use
  Company Number: NZ-MERCK-0608NZL00002

PATIENT
  Sex: Female

DRUGS (2)
  1. SIMVASTATIN [Suspect]
     Indication: BLOOD CHOLESTEROL INCREASED
     Route: 048
     Dates: start: 20050101, end: 20050101
  2. SIMVASTATIN [Suspect]
     Route: 048
     Dates: start: 20060525, end: 20060718

REACTIONS (5)
  - DIARRHOEA [None]
  - HEADACHE [None]
  - HYPOTENSION [None]
  - NECK PAIN [None]
  - VOMITING [None]
